FAERS Safety Report 11526098 (Version 1)
Quarter: 2015Q3

REPORT INFORMATION
  Report Type: Spontaneous
  Country: US (occurrence: US)
  Receive Date: 20150918
  Receipt Date: 20150918
  Transmission Date: 20151125
  Serious: Yes (Death, Other)
  Sender: FDA-Public Use
  Company Number: US-TAKEDA-TPA2012A06933

PATIENT

DRUGS (5)
  1. ACTOS [Suspect]
     Active Substance: PIOGLITAZONE HYDROCHLORIDE
     Indication: TYPE 2 DIABETES MELLITUS
     Dosage: 15 MG, UNK
     Dates: start: 2003, end: 2004
  2. METFORMIN [Concomitant]
     Active Substance: METFORMIN HYDROCHLORIDE
     Dosage: 1000 MG, UNK
     Dates: start: 2003, end: 2008
  3. GLUCOPHAGE [Concomitant]
     Active Substance: METFORMIN HYDROCHLORIDE
     Dosage: 500 MG, UNK
     Dates: start: 2000, end: 2002
  4. LANTUS [Concomitant]
     Active Substance: INSULIN GLARGINE
     Dosage: 100 IU, UNK
     Dates: start: 2007, end: 2009
  5. HUMALOG [Concomitant]
     Active Substance: INSULIN LISPRO
     Dosage: 100 IU, UNK
     Dates: start: 2003, end: 2008

REACTIONS (9)
  - Metastases to liver [Fatal]
  - Metastases to lymph nodes [Fatal]
  - Metastatic carcinoma of the bladder [Fatal]
  - Metastases to retroperitoneum [Fatal]
  - Kidney fibrosis [Fatal]
  - Metastases to bone [Fatal]
  - Blood urea increased [Fatal]
  - Calculus ureteric [Fatal]
  - Metastases to lung [Fatal]

NARRATIVE: CASE EVENT DATE: 2004
